FAERS Safety Report 8499900-5 (Version None)
Quarter: 2012Q3

REPORT INFORMATION
  Report Type: 
  Country: None (occurrence: None)
  Receive Date: 20120710
  Receipt Date: 20120705
  Transmission Date: 20120928
  Serious: Yes (Death)
  Sender: FDA-Public Use
  Company Number: PHEH2012US013422

PATIENT
  Sex: Male

DRUGS (3)
  1. GLEEVEC [Concomitant]
  2. RUXOLITINIB [Concomitant]
  3. TASIGNA [Suspect]
     Indication: CHRONIC MYELOID LEUKAEMIA
     Dosage: 300 MG, BID
     Route: 048
     Dates: start: 20120503, end: 20120705

REACTIONS (1)
  - DEATH [None]
